FAERS Safety Report 8007113-6 (Version None)
Quarter: 2011Q4

REPORT INFORMATION
  Report Type: 
  Country: None (occurrence: None)
  Receive Date: 20111227
  Receipt Date: 20111221
  Transmission Date: 20120403
  Serious: Yes (Other)
  Sender: FDA-Public Use
  Company Number: GB-PFIZER INC-2011303969

PATIENT
  Age: 83 Year
  Sex: Female
  Weight: 64.9 kg

DRUGS (3)
  1. AMLODIPINE BESYLATE [Suspect]
     Dosage: 5 MG, UNK
     Route: 048
  2. BECONASE [Concomitant]
  3. BENDROFLUMETHIAZIDE [Concomitant]
     Dosage: 2.5 MG, UNK
     Route: 048

REACTIONS (6)
  - DIZZINESS [None]
  - SINUS DISORDER [None]
  - HEADACHE [None]
  - LOCAL SWELLING [None]
  - PHOTOPHOBIA [None]
  - SWELLING FACE [None]
